FAERS Safety Report 17772009 (Version 2)
Quarter: 2020Q2

REPORT INFORMATION
  Report Type: Spontaneous
  Country: DE (occurrence: DE)
  Receive Date: 20200512
  Receipt Date: 20200619
  Transmission Date: 20200714
  Serious: Yes (Hospitalization, Other)
  Sender: FDA-Public Use
  Company Number: DE-UCBSA-2020019114

PATIENT
  Age: 31 Year
  Sex: Female

DRUGS (1)
  1. CIMZIA [Suspect]
     Active Substance: CERTOLIZUMAB PEGOL
     Indication: SPONDYLOARTHROPATHY
     Dosage: UNK

REACTIONS (4)
  - Extrapulmonary tuberculosis [Unknown]
  - Ankylosing spondylitis [Unknown]
  - Pulmonary tuberculosis [Unknown]
  - Off label use [Unknown]

NARRATIVE: CASE EVENT DATE: 202002
